FAERS Safety Report 4996171-9 (Version None)
Quarter: 2006Q2

REPORT INFORMATION
  Report Type: 
  Country: None (occurrence: None)
  Receive Date: 20060504
  Receipt Date: 20060421
  Transmission Date: 20061013
  Serious: Yes (Hospitalization)
  Sender: FDA-Public Use
  Company Number: 2006044957

PATIENT
  Age: 57 Year
  Sex: Male
  Weight: 62.5 kg

DRUGS (3)
  1. SUTENT [Suspect]
     Indication: RENAL CELL CARCINOMA STAGE UNSPECIFIED
     Dosage: 50 MG (50 MG, 1 IN 1D), ORAL
     Route: 048
     Dates: start: 20060110, end: 20060206
  2. SOLUPRED                    (PREDNISOLONE SODIUM SULFOBENZOATE) [Concomitant]
  3. EFFERALGAN CODEINE            (CODEINE PHOSPHATE, PARACETAMOL) [Concomitant]

REACTIONS (1)
  - PLEURAL EFFUSION [None]
